FAERS Safety Report 4474397-0 (Version None)
Quarter: 2004Q4

REPORT INFORMATION
  Report Type: 
  Country: None (occurrence: None)
  Receive Date: 20041014
  Receipt Date: 20041007
  Transmission Date: 20050328
  Serious: Yes (Life-Threatening, Hospitalization, Disabling)
  Sender: FDA-Public Use
  Company Number: US-MERCK-0410USA01164

PATIENT
  Age: 34 Year
  Sex: Female

DRUGS (5)
  1. VICODIN [Concomitant]
     Route: 065
  2. VIOXX [Suspect]
     Indication: ARTHRITIS
     Route: 048
     Dates: start: 20040401, end: 20040901
  3. VIOXX [Suspect]
     Route: 048
     Dates: start: 20031001, end: 20040401
  4. VIOXX [Suspect]
     Indication: PAIN
     Route: 048
     Dates: start: 20040401, end: 20040901
  5. VIOXX [Suspect]
     Route: 048
     Dates: start: 20031001, end: 20040401

REACTIONS (4)
  - ADVERSE EVENT [None]
  - ANGINA PECTORIS [None]
  - CARDIAC MURMUR [None]
  - HEART RATE ABNORMAL [None]
